FAERS Safety Report 9296964 (Version 1)
Quarter: 2013Q2

REPORT INFORMATION
  Report Type: Spontaneous
  Country: US (occurrence: US)
  Receive Date: 20130518
  Receipt Date: 20130518
  Transmission Date: 20140414
  Serious: Yes (Death, Life-Threatening, Other)
  Sender: FDA-Public Use
  Company Number: US-ROXANE LABORATORIES, INC.-2013-RO-00780RO

PATIENT
  Age: 87 Year
  Sex: Male

DRUGS (11)
  1. CITALOPRAM [Suspect]
     Indication: PANIC DISORDER
     Dosage: 20 MG
  2. LACTULOSE SOLUTION USP, 10 G/15 ML [Suspect]
     Dosage: 10 ML
  3. ASPIRIN [Suspect]
     Indication: MYOCARDIAL INFARCTION
     Dosage: 100 MG
  4. OLANZAPINE [Suspect]
     Dosage: 5 MG
  5. ZOPICLONE [Suspect]
     Dosage: 7.5 MG
  6. NITRENDIPINE [Suspect]
     Dosage: 20 MG
  7. BISOPROLOL [Suspect]
     Dosage: 5 MG
  8. LISINOPRIL HYDROCHLOROTHIAZIDE [Suspect]
  9. BUPRENORPHINE [Suspect]
     Route: 062
  10. VITAMIN B12 [Suspect]
  11. PREGABALIN [Suspect]
     Dosage: 150 MG

REACTIONS (10)
  - Myocardial infarction [Fatal]
  - Gastrointestinal haemorrhage [Fatal]
  - Gastric ulcer [Fatal]
  - Haemorrhagic anaemia [Fatal]
  - Aneurysm [Unknown]
  - Hypokinesia [Unknown]
  - Alpha haemolytic streptococcal infection [Unknown]
  - Oesophageal candidiasis [Unknown]
  - Escherichia infection [Unknown]
  - Pyrexia [Unknown]
